FAERS Safety Report 5225735-2 (Version None)
Quarter: 2007Q1

REPORT INFORMATION
  Report Type: 
  Country: None (occurrence: None)
  Receive Date: 20070131
  Receipt Date: 20070131
  Transmission Date: 20070707
  Serious: No
  Sender: FDA-Public Use
  Company Number: None

PATIENT
  Sex: Male
  Weight: 17.5 kg

DRUGS (3)
  1. ONCASPAR [Suspect]
     Indication: ACUTE LYMPHOCYTIC LEUKAEMIA
     Dosage: 6000 UNIT/ M2 ONCE IM
     Route: 030
     Dates: start: 20061002
  2. ONCASPAR [Suspect]
     Indication: ACUTE LYMPHOCYTIC LEUKAEMIA
     Dosage: 6000 UNIT/ M2 ONCE IM
     Route: 030
     Dates: start: 20061219
  3. ONCASPAR [Suspect]
     Indication: ACUTE LYMPHOCYTIC LEUKAEMIA
     Dosage: 6000 UNIT/ M2 ONCE IM
     Route: 030
     Dates: start: 20070109

REACTIONS (2)
  - BODY TEMPERATURE INCREASED [None]
  - RASH GENERALISED [None]
